FAERS Safety Report 8563957-3 (Version None)
Quarter: 2012Q3

REPORT INFORMATION
  Report Type: 
  Country: None (occurrence: None)
  Receive Date: 20120803
  Receipt Date: 20120730
  Transmission Date: 20120928
  Serious: Yes (Hospitalization, Other)
  Sender: FDA-Public Use
  Company Number: PHHY2012NZ061960

PATIENT
  Age: 88 Year
  Sex: Female

DRUGS (6)
  1. ACCUPRIL [Concomitant]
     Dosage: 1 DF, DAILY
     Route: 048
  2. LIPITOR [Concomitant]
     Dosage: 20 MG, ONE TABLET PER NIGHT
     Route: 048
  3. ZOLEDRONOC ACID [Suspect]
     Indication: OSTEOPOROSIS
     Dosage: 5 MG/100 ML INFUSED OVER 30 MINUTES
     Route: 042
     Dates: start: 20120711
  4. MOCLOBEMIDE [Concomitant]
     Dosage: 150 MG, (ONE TABLET TWICE DAILY)
     Route: 048
  5. LANSOPRAZOLE [Concomitant]
     Dosage: 30 MG, (ONE TABLET TWICE DAILY)
     Route: 048
  6. METOPROLOL TARTRATE [Concomitant]
     Dosage: 47.5 MG, ONE TABLET DAILY
     Route: 048

REACTIONS (2)
  - URINARY TRACT INFECTION [None]
  - CIRCULATORY COLLAPSE [None]
